FAERS Safety Report 10033336 (Version 2)
Quarter: 2014Q2

REPORT INFORMATION
  Report Type: Spontaneous
  Country: DE (occurrence: DE)
  Receive Date: 20140325
  Receipt Date: 20140507
  Transmission Date: 20141212
  Serious: Yes (Life-Threatening, Other)
  Sender: FDA-Public Use
  Company Number: DE-ROCHE-1368099

PATIENT
  Age: 46 Year
  Sex: Male
  Weight: 61.7 kg

DRUGS (5)
  1. ZELBORAF [Suspect]
     Indication: MALIGNANT MELANOMA
     Route: 048
  2. ZELBORAF [Suspect]
     Route: 048
  3. RAMIPRIL [Concomitant]
     Indication: HYPERTENSION
     Dosage: 1-0-1
     Route: 048
     Dates: start: 20131205
  4. ZOPICLON [Concomitant]
     Indication: INSOMNIA
     Dosage: 0-0-0-1
     Route: 048
     Dates: start: 20131205
  5. MIRTAZAPIN [Concomitant]
     Indication: DEPRESSION
     Dosage: 0-0-1
     Route: 048
     Dates: start: 20131205, end: 20140328

REACTIONS (2)
  - Pigmentation disorder [Not Recovered/Not Resolved]
  - Decreased appetite [Not Recovered/Not Resolved]
